FAERS Safety Report 8045958-7 (Version None)
Quarter: 2012Q1

REPORT INFORMATION
  Report Type: 
  Country: None (occurrence: None)
  Receive Date: 20120113
  Receipt Date: 20120110
  Transmission Date: 20120608
  Serious: Yes (Other)
  Sender: FDA-Public Use
  Company Number: DE-GLAXOSMITHKLINE-D0073381A

PATIENT
  Sex: Male

DRUGS (2)
  1. TROBALT [Suspect]
     Indication: PARTIAL SEIZURES
     Dosage: 50MG THREE TIMES PER DAY
     Route: 048
     Dates: start: 20110519
  2. KEPPRA [Concomitant]
     Indication: PARTIAL SEIZURES
     Dosage: 3000MG PER DAY
     Route: 065

REACTIONS (3)
  - BLADDER DISORDER [None]
  - BUNDLE BRANCH BLOCK LEFT [None]
  - CONVULSION [None]
